FAERS Safety Report 9859521 (Version 2)
Quarter: 2014Q1

REPORT INFORMATION
  Report Type: Spontaneous
  Country: FR (occurrence: FR)
  Receive Date: 20140131
  Receipt Date: 20140204
  Transmission Date: 20141002
  Serious: Yes (Other)
  Sender: FDA-Public Use
  Company Number: FR-PFIZER INC-2014023724

PATIENT
  Age: 57 Year
  Sex: Male
  Weight: 71 kg

DRUGS (6)
  1. FLUOROURACILE PFIZER [Suspect]
     Indication: COLORECTAL ADENOCARCINOMA
     Dosage: 2400 MG/M2, ONCE EVERY 2 WEEKS
     Route: 041
     Dates: start: 20131213, end: 20131229
  2. OXALIPLATINE ACCORD [Suspect]
     Indication: COLORECTAL ADENOCARCINOMA
     Dosage: 95 MG/M2, ONCE EVERY 2 WEEKS
     Route: 041
     Dates: start: 20131213, end: 20131229
  3. OMEPRAZOLE [Concomitant]
     Dosage: 20 MG, 1X/DAY
     Route: 048
  4. DIOSMECTITE (SMECTA) [Concomitant]
     Dosage: 1 DF, 1X/DAY
     Route: 048
  5. PARACETAMOL [Concomitant]
     Indication: ABDOMINAL PAIN
  6. FOLINIC ACID [Concomitant]
     Indication: CHEMOTHERAPY

REACTIONS (9)
  - Mesenteric vein thrombosis [Not Recovered/Not Resolved]
  - Abdominal pain [Unknown]
  - Nausea [Unknown]
  - Gastrointestinal motility disorder [Unknown]
  - Pyrexia [Unknown]
  - Decreased appetite [Unknown]
  - Biliary cyst [Unknown]
  - Weight decreased [Unknown]
  - Microcytic anaemia [Unknown]
